FAERS Safety Report 7057347-2 (Version None)
Quarter: 2010Q4

REPORT INFORMATION
  Report Type: 
  Country: None (occurrence: None)
  Receive Date: 20101022
  Receipt Date: 20101019
  Transmission Date: 20110411
  Serious: Yes (Hospitalization)
  Sender: FDA-Public Use
  Company Number: FR-SANOFI-AVENTIS-2010SA063451

PATIENT
  Age: 79 Year
  Sex: Female

DRUGS (9)
  1. FUROSEMIDE [Suspect]
     Route: 048
     Dates: start: 20100705, end: 20100716
  2. ALDACTONE [Suspect]
     Route: 048
     Dates: start: 20100701, end: 20100715
  3. PERINDOPRIL [Suspect]
     Route: 048
     Dates: end: 20100715
  4. DIFFU K [Suspect]
     Indication: PRODUCT USED FOR UNKNOWN INDICATION
     Route: 048
     Dates: start: 20100630, end: 20100715
  5. CARDENSIEL [Suspect]
     Route: 048
     Dates: end: 20100716
  6. CARDENSIEL [Suspect]
     Route: 048
     Dates: start: 20100716
  7. TAHOR [Concomitant]
     Route: 048
  8. PREVISCAN [Concomitant]
     Route: 048
  9. KARDEGIC [Concomitant]
     Route: 048

REACTIONS (3)
  - HYPERKALAEMIA [None]
  - HYPONATRAEMIA [None]
  - MUSCLE SPASMS [None]
